FAERS Safety Report 22115682 (Version 1)
Quarter: 2023Q1

REPORT INFORMATION
  Report Type: Report from Study
  Country: US (occurrence: US)
  Receive Date: 20230320
  Receipt Date: 20230320
  Transmission Date: 20230418
  Serious: Yes (Other)
  Sender: FDA-Public Use
  Company Number: US-GILEAD-2023-0620641

PATIENT
  Sex: Male

DRUGS (1)
  1. LEDIPASVIR\SOFOSBUVIR [Suspect]
     Active Substance: LEDIPASVIR\SOFOSBUVIR
     Indication: Hepatitis C
     Dosage: 1 DOSAGE FORM, QD (ONE TABLET DAILY WITHOUT FOOD IN THE MORNING)
     Route: 065

REACTIONS (6)
  - Urinary retention [Not Recovered/Not Resolved]
  - Prostatomegaly [Not Recovered/Not Resolved]
  - Asthenia [Not Recovered/Not Resolved]
  - Headache [Not Recovered/Not Resolved]
  - Vision blurred [Not Recovered/Not Resolved]
  - Abdominal distension [Not Recovered/Not Resolved]
